FAERS Safety Report 8113661-0 (Version None)
Quarter: 2011Q4

REPORT INFORMATION
  Report Type: 
  Country: None (occurrence: None)
  Receive Date: 20111227
  Receipt Date: 20110901
  Transmission Date: 20120403
  Serious: Yes (Other)
  Sender: FDA-Public Use
  Company Number: PHEH2011US03231

PATIENT
  Age: 34 Year
  Sex: Female

DRUGS (4)
  1. CELEXA [Concomitant]
  2. GILENYA [Suspect]
     Indication: MULTIPLE SCLEROSIS
     Dosage: 0.5 MG, QD, ORAL
     Route: 048
     Dates: start: 20110616
  3. WELLBUTRIN [Concomitant]
  4. BUSPAR [Concomitant]

REACTIONS (2)
  - INSOMNIA [None]
  - DEPRESSION [None]
